FAERS Safety Report 8962353 (Version 1)
Quarter: 2012Q4

REPORT INFORMATION
  Report Type: Spontaneous
  Country: US (occurrence: None)
  Receive Date: 20120907
  Receipt Date: 20120907
  Transmission Date: 20130627
  Serious: No
  Sender: FDA-Public Use
  Company Number: SPI201200202

PATIENT
  Sex: Female

DRUGS (1)
  1. AMITIZA [Suspect]
     Route: 048

REACTIONS (1)
  - Chest pain [None]
